FAERS Safety Report 7559482-9 (Version None)
Quarter: 2011Q2

REPORT INFORMATION
  Report Type: 
  Country: None (occurrence: None)
  Receive Date: 20110617
  Receipt Date: 20110617
  Transmission Date: 20111010
  Serious: Yes (Hospitalization)
  Sender: FDA-Public Use
  Company Number: None

PATIENT
  Age: 80 Year
  Sex: Male
  Weight: 78 kg

DRUGS (1)
  1. WARFARIN SODIUM [Suspect]
     Indication: ATRIAL FIBRILLATION
     Dosage: 5MG EVERY DAY PO
     Route: 048
     Dates: start: 20100813, end: 20100822

REACTIONS (4)
  - HAEMOPTYSIS [None]
  - THROMBOSIS [None]
  - HAEMORRHAGE URINARY TRACT [None]
  - GASTRIC HAEMORRHAGE [None]
